FAERS Safety Report 6784915-5 (Version None)
Quarter: 2010Q2

REPORT INFORMATION
  Report Type: 
  Country: None (occurrence: None)
  Receive Date: 20100622
  Receipt Date: 20100614
  Transmission Date: 20101027
  Serious: Yes (Other)
  Sender: FDA-Public Use
  Company Number: JP-BAXTER-2010BH014543

PATIENT
  Age: 77 Year
  Sex: Female

DRUGS (2)
  1. ENDOXAN BAXTER [Suspect]
     Indication: BREAST CANCER
     Route: 041
  2. DOXORUBICIN HCL [Suspect]
     Indication: BREAST CANCER
     Route: 041

REACTIONS (2)
  - DEMENTIA [None]
  - LEUKOENCEPHALOPATHY [None]
